FAERS Safety Report 4264520-5 (Version None)
Quarter: 2004Q1

REPORT INFORMATION
  Report Type: 
  Country: None (occurrence: None)
  Receive Date: 20040102
  Receipt Date: 20031219
  Transmission Date: 20041129
  Serious: Yes (Other)
  Sender: FDA-Public Use
  Company Number: 2003121603

PATIENT
  Sex: Male

DRUGS (2)
  1. DILANTIN [Suspect]
     Indication: GRAND MAL CONVULSION
     Dosage: ORAL
     Route: 048
  2. NEURONTIN [Suspect]
     Indication: GRAND MAL CONVULSION
     Dosage: 1200 MG (QID),ORAL
     Route: 048
     Dates: end: 20031203

REACTIONS (11)
  - ARTHRALGIA [None]
  - BONE PAIN [None]
  - CONFUSIONAL STATE [None]
  - CONVULSION [None]
  - DRUG INEFFECTIVE [None]
  - MYALGIA [None]
  - PAIN IN EXTREMITY [None]
  - PERSONALITY DISORDER [None]
  - SOCIAL AVOIDANT BEHAVIOUR [None]
  - UNEMPLOYMENT [None]
  - WEIGHT INCREASED [None]
